FAERS Safety Report 5643881-6 (Version None)
Quarter: 2008Q1

REPORT INFORMATION
  Report Type: 
  Country: None (occurrence: None)
  Receive Date: 20080226
  Receipt Date: 20080214
  Transmission Date: 20080703
  Serious: Yes (Hospitalization)
  Sender: FDA-Public Use
  Company Number: AZAUS200800027

PATIENT
  Age: 65 Year
  Sex: Male
  Weight: 80 kg

DRUGS (12)
  1. VIDAZA [Suspect]
     Indication: MYELOPROLIFERATIVE DISORDER
     Dosage: 75 MG/M2,DAILY X 5 DAYS , INTRAVENOUS
     Route: 042
     Dates: start: 20080114, end: 20080117
  2. VIDAZA [Suspect]
  3. VIDAZA [Suspect]
  4. PROCHLORPERAZINE MALEATE [Concomitant]
  5. DOCUSATE SODIUM (DOCUSATE SODIUM) [Concomitant]
  6. SENNA(SENNOSIDE A+B) [Concomitant]
  7. FIBERCON (POLYCARBOPHIL CALCIUM) [Concomitant]
  8. BENADRYL [Concomitant]
  9. ACETAMINOPHEN [Concomitant]
  10. ALOXI [Concomitant]
  11. PREDNISONE TAB [Concomitant]
  12. MIRALAX [Concomitant]

REACTIONS (9)
  - ABDOMINAL PAIN [None]
  - BONE MARROW DISORDER [None]
  - CEREBROVASCULAR ACCIDENT [None]
  - MUSCULOSKELETAL PAIN [None]
  - NECROSIS [None]
  - PAIN [None]
  - RASH ERYTHEMATOUS [None]
  - RESPIRATORY DISORDER [None]
  - SPLENIC INFARCTION [None]
